FAERS Safety Report 20016522 (Version 1)
Quarter: 2021Q4

REPORT INFORMATION
  Report Type: Spontaneous
  Country: US (occurrence: None)
  Receive Date: 20211104
  Receipt Date: 20211104
  Transmission Date: 20220303
  Serious: Yes (Life-Threatening, Hospitalization)
  Sender: FDA-Public Use
  Company Number: None

PATIENT
  Age: 47 Year
  Sex: Female
  Weight: 63 kg

DRUGS (9)
  1. KEYTRUDA [Suspect]
     Active Substance: PEMBROLIZUMAB
     Indication: Neoplasm malignant
     Dates: start: 20210602, end: 20210623
  2. LASIX [Concomitant]
     Active Substance: FUROSEMIDE
  3. PREDNISONE [Concomitant]
     Active Substance: PREDNISONE
  4. SPIRONOLACTONE [Concomitant]
     Active Substance: SPIRONOLACTONE
  5. ENTRESTO [Concomitant]
     Active Substance: SACUBITRIL\VALSARTAN
  6. ELIQUIS [Concomitant]
     Active Substance: APIXABAN
  7. PROTONIX [Concomitant]
     Active Substance: PANTOPRAZOLE SODIUM
  8. DIGOXIN [Concomitant]
     Active Substance: DIGOXIN
  9. COREG [Concomitant]
     Active Substance: CARVEDILOL

REACTIONS (4)
  - Myocarditis [None]
  - Cardiac failure congestive [None]
  - Intracardiac thrombus [None]
  - Immune system disorder [None]

NARRATIVE: CASE EVENT DATE: 20210624
